FAERS Safety Report 9709342 (Version 1)
Quarter: 2013Q4

REPORT INFORMATION
  Report Type: Spontaneous
  Country: US (occurrence: US)
  Receive Date: 20131125
  Receipt Date: 20131125
  Transmission Date: 20140711
  Serious: No
  Sender: FDA-Public Use
  Company Number: US-009507513-1311USA009956

PATIENT
  Sex: Female
  Weight: 82.86 kg

DRUGS (1)
  1. NEXPLANON [Suspect]
     Indication: CONTRACEPTION
     Dosage: DOSE/FREQUENCY: EVERY 3 YEARS, 1 ROD
     Route: 059
     Dates: start: 20121102

REACTIONS (4)
  - Migraine [Not Recovered/Not Resolved]
  - Anxiety [Not Recovered/Not Resolved]
  - Menorrhagia [Not Recovered/Not Resolved]
  - Implant site swelling [Not Recovered/Not Resolved]
